FAERS Safety Report 4947811-1 (Version None)
Quarter: 2006Q1

REPORT INFORMATION
  Report Type: 
  Country: None (occurrence: None)
  Receive Date: 20060320
  Receipt Date: 20060315
  Transmission Date: 20060701
  Serious: Yes (Hospitalization)
  Sender: FDA-Public Use
  Company Number: FR-GLAXOSMITHKLINE-B0416047A

PATIENT
  Age: 96 Year
  Sex: Female
  Weight: 58 kg

DRUGS (6)
  1. AUGMENTIN '125' [Suspect]
     Indication: SUPERINFECTION LUNG
     Dosage: 3G PER DAY
     Route: 048
  2. PREVISCAN [Suspect]
     Dosage: .5UNIT PER DAY
     Route: 048
  3. LASILIX [Concomitant]
     Dosage: 60MG PER DAY
     Route: 048
  4. DIFFU K [Concomitant]
     Dosage: 4UNIT PER DAY
     Route: 048
  5. OMEPRAZOLE [Concomitant]
     Dosage: 20MG PER DAY
     Route: 048
  6. MONICOR [Concomitant]
     Dosage: 20MG PER DAY
     Route: 048

REACTIONS (3)
  - DRUG INTERACTION [None]
  - INTERNATIONAL NORMALISED RATIO INCREASED [None]
  - OVERDOSE [None]
